FAERS Safety Report 7153398-8 (Version None)
Quarter: 2010Q4

REPORT INFORMATION
  Report Type: 
  Country: None (occurrence: None)
  Receive Date: 20101213
  Receipt Date: 20101201
  Transmission Date: 20110411
  Serious: Yes (Death, Hospitalization)
  Sender: FDA-Public Use
  Company Number: A0767210A

PATIENT
  Age: 69 Year
  Sex: Male
  Weight: 81.8 kg

DRUGS (9)
  1. AVANDIA [Suspect]
     Indication: DIABETES MELLITUS
     Route: 048
     Dates: start: 20020101, end: 20070223
  2. FISH OIL TABLETS [Concomitant]
  3. STARLIX [Concomitant]
  4. ASPIRIN [Concomitant]
  5. CRESTOR [Concomitant]
  6. BENAZEPRIL HYDROCHLORIDE AND HYDROCHLOROTHIAZIDE [Concomitant]
  7. METFORMIN [Concomitant]
  8. GLIMEPIRIDE [Concomitant]
  9. LIPITOR [Concomitant]

REACTIONS (3)
  - CARDIAC FAILURE CONGESTIVE [None]
  - MULTI-ORGAN FAILURE [None]
  - MYOCARDIAL INFARCTION [None]
